FAERS Safety Report 20814571 (Version 1)
Quarter: 2022Q2

REPORT INFORMATION
  Report Type: Spontaneous
  Country: US (occurrence: US)
  Receive Date: 20220511
  Receipt Date: 20220511
  Transmission Date: 20220721
  Serious: Yes (Other)
  Sender: FDA-Public Use
  Company Number: US-PFM-2022-03553

PATIENT
  Age: 5 Month
  Sex: Male

DRUGS (3)
  1. PROPRANOLOL [Suspect]
     Active Substance: PROPRANOLOL HYDROCHLORIDE
     Indication: Hepatitis
     Dosage: UNK
     Route: 065
  2. PROPRANOLOL [Suspect]
     Active Substance: PROPRANOLOL HYDROCHLORIDE
     Indication: Off label use
  3. POTASSIUM IODIDE [Suspect]
     Active Substance: POTASSIUM IODIDE
     Indication: Hepatitis
     Dosage: UNK
     Route: 065

REACTIONS (6)
  - Hyperthyroidism [Unknown]
  - Ejection fraction decreased [Unknown]
  - Gastrooesophageal reflux disease [Unknown]
  - Feeding intolerance [Unknown]
  - Off label use [Unknown]
  - Product use in unapproved indication [Unknown]
